FAERS Safety Report 8056989-5 (Version None)
Quarter: 2012Q1

REPORT INFORMATION
  Report Type: 
  Country: None (occurrence: None)
  Receive Date: 20120119
  Receipt Date: 20120116
  Transmission Date: 20120608
  Serious: Yes (Life-Threatening, Hospitalization, Other)
  Sender: FDA-Public Use
  Company Number: US-ACTELION-A-NJ2010-40522

PATIENT

DRUGS (2)
  1. TRACLEER [Suspect]
     Indication: PULMONARY ARTERIAL HYPERTENSION
     Dosage: 10 MG, BID
     Route: 048
     Dates: start: 20100724
  2. VIAGRA [Concomitant]

REACTIONS (4)
  - URETHRAL REPAIR [None]
  - PULMONARY ARTERIAL HYPERTENSION [None]
  - MECHANICAL VENTILATION [None]
  - LUNG DISORDER [None]
